FAERS Safety Report 16498365 (Version 1)
Quarter: 2019Q2

REPORT INFORMATION
  Report Type: Spontaneous
  Country: US (occurrence: US)
  Receive Date: 20190629
  Receipt Date: 20190629
  Transmission Date: 20190711
  Serious: No
  Sender: FDA-Public Use
  Company Number: US-TEVA-2019-US-1060399

PATIENT
  Sex: Female

DRUGS (2)
  1. QUETIAPINE FUMARATE 25 MG [Suspect]
     Active Substance: QUETIAPINE FUMARATE
     Route: 065
     Dates: start: 20190527
  2. B COMPLEX MAGNESIUM VITAMIN [Concomitant]

REACTIONS (3)
  - Insomnia [Unknown]
  - Constipation [Unknown]
  - Wrong technique in product usage process [Unknown]
